FAERS Safety Report 9537794 (Version 1)
Quarter: 2013Q3

REPORT INFORMATION
  Report Type: Report from Study
  Country: VE (occurrence: VE)
  Receive Date: 20130919
  Receipt Date: 20130919
  Transmission Date: 20140515
  Serious: Yes (Hospitalization)
  Sender: FDA-Public Use
  Company Number: VE-ABBVIE-13P-178-1148745-00

PATIENT
  Age: 78 Year
  Sex: Female

DRUGS (1)
  1. ZEMPLAR [Suspect]
     Indication: RENAL FAILURE
     Route: 042
     Dates: start: 201110, end: 20130411

REACTIONS (1)
  - Ischaemic stroke [Unknown]
